FAERS Safety Report 23472145 (Version 2)
Quarter: 2024Q1

REPORT INFORMATION
  Report Type: Spontaneous
  Country: US (occurrence: US)
  Receive Date: 20240202
  Receipt Date: 20240313
  Transmission Date: 20240409
  Serious: Yes (Life-Threatening)
  Sender: FDA-Public Use
  Company Number: US-Blueprint Medicines Corporation-2125

PATIENT
  Sex: Female

DRUGS (1)
  1. AYVAKIT [Suspect]
     Active Substance: AVAPRITINIB
     Indication: Systemic mastocytosis
     Route: 065
     Dates: start: 20230913

REACTIONS (5)
  - Platelet disorder [Unknown]
  - Guttate psoriasis [Unknown]
  - Eczema [Unknown]
  - Pruritus [Unknown]
  - Tryptase [Unknown]
